FAERS Safety Report 12203345 (Version 1)
Quarter: 2016Q1

REPORT INFORMATION
  Report Type: Spontaneous
  Country: US (occurrence: None)
  Receive Date: 20160321
  Receipt Date: 20160321
  Transmission Date: 20160526
  Serious: Yes (Hospitalization)
  Sender: FDA-Public Use
  Company Number: None

PATIENT
  Age: 65 Year
  Sex: Female
  Weight: 80 kg

DRUGS (6)
  1. AMLODIPINE [Concomitant]
     Active Substance: AMLODIPINE BESYLATE
  2. ONDANSETRON [Concomitant]
     Active Substance: ONDANSETRON
  3. LOSARTAN. [Concomitant]
     Active Substance: LOSARTAN
  4. TAXOL [Suspect]
     Active Substance: PACLITAXEL
     Dates: end: 20160303
  5. CYCLOPHOSPHAMIDE. [Suspect]
     Active Substance: CYCLOPHOSPHAMIDE
     Dates: end: 20160120
  6. DOXORUBICIN HYDROCHLORIDE. [Suspect]
     Active Substance: DOXORUBICIN HYDROCHLORIDE
     Dates: end: 20160120

REACTIONS (4)
  - Headache [None]
  - Pain [None]
  - Blood pressure increased [None]
  - Contrast media reaction [None]

NARRATIVE: CASE EVENT DATE: 20160307
